FAERS Safety Report 23969337 (Version 1)
Quarter: 2024Q2

REPORT INFORMATION
  Report Type: Spontaneous
  Country: DE (occurrence: DE)
  Receive Date: 20240612
  Receipt Date: 20240612
  Transmission Date: 20240716
  Serious: Yes (Hospitalization)
  Sender: FDA-Public Use
  Company Number: DE-ROCHE-3113654

PATIENT
  Age: 63 Year
  Sex: Male
  Weight: 99 kg

DRUGS (14)
  1. CISPLATIN [Suspect]
     Active Substance: CISPLATIN
     Indication: Non-small cell lung cancer metastatic
     Dosage: 165 MG, TIW (ON 26/MAY/2021, HE RECEIVED HIS MOST RECENT DOSE (150 MG) OF CISPLATIN PRIOR TO SAE.LAS
     Route: 042
     Dates: start: 20210324
  2. PEMETREXED [Suspect]
     Active Substance: PEMETREXED
     Indication: Non-small cell lung cancer metastatic
     Dosage: 1100 MG, TIW (0N 09/MAR/2022, HE RECEIVED MOST RECENT DOSE (1000 MG) OF PEMETREXED PRIOR TO AE AND S
     Route: 042
     Dates: start: 20210324
  3. ATEZOLIZUMAB [Concomitant]
     Active Substance: ATEZOLIZUMAB
     Indication: Non-small cell lung cancer metastatic
     Dosage: UNK UNK, TIW (ON 19/MAY/2022, HE RECEIVED MOST RECENT DOSE OF BLINDED ATEZOLIZUMAB PRIOR TO SAE.)
     Route: 065
     Dates: start: 20210324
  4. CANDESARTAN [Concomitant]
     Active Substance: CANDESARTAN
     Indication: Hypertension
     Dosage: 16 TABLET
     Route: 065
     Dates: start: 20100601
  5. CARBOPLATIN [Concomitant]
     Active Substance: CARBOPLATIN
     Indication: Product used for unknown indication
     Dosage: UNK
     Route: 065
     Dates: start: 20220623, end: 20220916
  6. LERCANIDIPINE [Concomitant]
     Active Substance: LERCANIDIPINE
     Indication: Hypertension
     Dosage: 10 MG, QD
     Route: 065
     Dates: start: 20150601
  7. METOPROLOL [Concomitant]
     Active Substance: METOPROLOL
     Indication: Atrial fibrillation
     Dosage: 190 MG, QD
     Route: 065
     Dates: start: 20160601
  8. PEMBROLIZUMAB [Concomitant]
     Active Substance: PEMBROLIZUMAB
     Indication: Non-small cell lung cancer metastatic
     Dosage: UNK, TIW (ON 19/MAY/2022, HE RECEIVED MOST RECENT DOSE OF BLINDED PEMBROLIZUMAB PRIOR TO SAE.)
     Route: 065
     Dates: start: 20210324
  9. CLEMASTINE FUMARATE [Concomitant]
     Active Substance: CLEMASTINE FUMARATE
     Indication: Product used for unknown indication
     Dosage: 1 MG, TIW
     Route: 065
     Dates: start: 20211116
  10. LEVOTHYROXINE SODIUM\POTASSIUM IODIDE [Concomitant]
     Active Substance: LEVOTHYROXINE SODIUM\POTASSIUM IODIDE
     Indication: Hypothyroidism
     Dosage: 196 MG, QD
     Route: 065
     Dates: start: 20000601
  11. TIRAGOLUMAB [Concomitant]
     Active Substance: TIRAGOLUMAB
     Indication: Non-small cell lung cancer metastatic
     Dosage: ON 19/MAY/2022, HE RECEIVED MOST RECENT DOSE OF TIRAGOLUMAB PRIOR TO AE AND SAE.
     Route: 065
     Dates: start: 20210324
  12. TORSEMIDE [Concomitant]
     Active Substance: TORSEMIDE
     Indication: Oedema peripheral
     Dosage: 5 MG, QD
     Route: 065
     Dates: start: 20210806
  13. VINORELBINE [Concomitant]
     Active Substance: VINORELBINE TARTRATE
     Indication: Product used for unknown indication
     Dosage: UNK
     Route: 065
     Dates: start: 20220623, end: 20220916
  14. XARELTO [Concomitant]
     Active Substance: RIVAROXABAN
     Indication: Atrial fibrillation
     Dosage: 20 MG, QD
     Route: 065
     Dates: start: 20190101

REACTIONS (1)
  - Vertigo [Not Recovered/Not Resolved]

NARRATIVE: CASE EVENT DATE: 20220607
